FAERS Safety Report 12775618 (Version 2)
Quarter: 2016Q4

REPORT INFORMATION
  Report Type: Report from Study
  Country: US (occurrence: US)
  Receive Date: 20160923
  Receipt Date: 20161019
  Transmission Date: 20170207
  Serious: Yes (Death, Hospitalization)
  Sender: FDA-Public Use
  Company Number: US-JNJFOC-20160823730

PATIENT
  Age: 89 Year
  Sex: Female

DRUGS (1)
  1. IMBRUVICA [Suspect]
     Active Substance: IBRUTINIB
     Indication: CHRONIC LYMPHOCYTIC LEUKAEMIA
     Route: 048
     Dates: start: 20160714, end: 2016

REACTIONS (11)
  - Arthritis bacterial [Fatal]
  - Generalised oedema [Unknown]
  - Thrombocytopenia [Unknown]
  - Cardiac failure acute [Unknown]
  - Pulmonary embolism [Unknown]
  - Pulmonary oedema [Unknown]
  - Fluid overload [Unknown]
  - Atrial fibrillation [Unknown]
  - Pleural effusion [Unknown]
  - Acute respiratory failure [Unknown]
  - Deep vein thrombosis [Unknown]

NARRATIVE: CASE EVENT DATE: 201608
